FAERS Safety Report 4382609-7 (Version None)
Quarter: 2004Q2

REPORT INFORMATION
  Report Type: 
  Country: None (occurrence: None)
  Receive Date: 20040617
  Receipt Date: 20040601
  Transmission Date: 20050107
  Serious: Yes (Hospitalization)
  Sender: FDA-Public Use
  Company Number: B0334450A

PATIENT
  Sex: Male

DRUGS (4)
  1. NICODERM CQ [Suspect]
     Indication: SMOKING CESSATION THERAPY
     Dosage: 21 MG, TRANSDERMAL
     Route: 062
     Dates: start: 20040402, end: 20040405
  2. BLOOD PRESSURE MEDICATION [Concomitant]
  3. DIABETES MEDICATION [Concomitant]
  4. INHALER [Concomitant]

REACTIONS (6)
  - APPLICATION SITE PRURITUS [None]
  - DEPRESSED MOOD [None]
  - INSOMNIA [None]
  - MALAISE [None]
  - PRURITUS [None]
  - RASH GENERALISED [None]
